FAERS Safety Report 8408378-9 (Version None)
Quarter: 2012Q2

REPORT INFORMATION
  Report Type: 
  Country: None (occurrence: None)
  Receive Date: 20120604
  Receipt Date: 20120529
  Transmission Date: 20120825
  Serious: Yes (Hospitalization, Other)
  Sender: FDA-Public Use
  Company Number: JP-B.I. PHARMACEUTICALS,INC./RIDGEFIELD-2012-EU-02162GD

PATIENT
  Age: 59 Year
  Sex: Female

DRUGS (8)
  1. L-DOPA [Suspect]
     Indication: PARKINSON'S DISEASE
     Dosage: 250 MG
     Route: 048
  2. OLANZAPINE [Suspect]
     Indication: PSYCHOTIC DISORDER
     Dosage: 5 MG
  3. PRAMIPEXOLE DIHYDROCHLORIDE [Suspect]
     Dosage: 0.75 MG
     Route: 048
  4. PRAMIPEXOLE DIHYDROCHLORIDE [Suspect]
     Dosage: DOSAGE ADJUSTMENTS (INCREASE) CARRIED OUT BY THE PATIENT
     Route: 048
  5. L-DOPA [Suspect]
     Dosage: DOSAGE ADJUSTMENTS (INCREASE) CARRIED OUT BY THE PATIENT
     Route: 048
  6. L-DOPA [Suspect]
     Dosage: 250 MG
     Route: 048
  7. PRAMIPEXOLE DIHYDROCHLORIDE [Suspect]
     Indication: PARKINSON'S DISEASE
     Dosage: 1.5 MG
     Route: 048
  8. PRAMIPEXOLE DIHYDROCHLORIDE [Suspect]
     Dosage: 1.5 MG
     Route: 048

REACTIONS (19)
  - PERSECUTORY DELUSION [None]
  - DISTRACTIBILITY [None]
  - LOGORRHOEA [None]
  - SPEECH DISORDER [None]
  - DYSPHAGIA [None]
  - MANIA [None]
  - ANXIETY [None]
  - HALLUCINATION, AUDITORY [None]
  - DELUSION [None]
  - MOTOR DYSFUNCTION [None]
  - MUSCLE RIGIDITY [None]
  - DEPRESSED MOOD [None]
  - INAPPROPRIATE AFFECT [None]
  - PSYCHOMOTOR HYPERACTIVITY [None]
  - FEELING GUILTY [None]
  - TREMOR [None]
  - GAIT DISTURBANCE [None]
  - COGNITIVE DISORDER [None]
  - HALLUCINATION, VISUAL [None]
